FAERS Safety Report 8206583-8 (Version None)
Quarter: 2012Q1

REPORT INFORMATION
  Report Type: 
  Country: None (occurrence: None)
  Receive Date: 20120313
  Receipt Date: 20120308
  Transmission Date: 20120608
  Serious: Yes (Hospitalization)
  Sender: FDA-Public Use
  Company Number: US-AMGEN-USASP2011006927

PATIENT
  Age: 63 Year
  Sex: Female
  Weight: 68.027 kg

DRUGS (20)
  1. SINGULAIR [Concomitant]
     Dosage: 10 MG, UNK
  2. NIACIN [Concomitant]
     Dosage: 500 MG, UNK
  3. VENTOLIN [Concomitant]
     Dosage: 108 MUG, UNK
  4. CALCIUM 600 + D [Concomitant]
     Dosage: 400 MG, UNK
  5. LANOXIN [Concomitant]
     Dosage: 0.125 MG, UNK
  6. IRON [Concomitant]
     Dosage: UNK
  7. COUMADIN [Concomitant]
     Dosage: 2.5 MG, UNK
  8. MIRALAX                            /00754501/ [Concomitant]
     Dosage: UNK
  9. DELTASONE                          /00016001/ [Concomitant]
     Dosage: 10 MG, UNK
  10. TEARS NATURALE FREE                /00134201/ [Concomitant]
     Dosage: UNK
  11. DILACOR XR [Concomitant]
     Dosage: 180 MG, QD
  12. METHOTREXATE [Concomitant]
     Dosage: 2.5 MG, UNK
  13. ADVAIR DISKUS 100/50 [Concomitant]
     Dosage: UNK
  14. FOLIC ACID [Concomitant]
     Dosage: 1 MG, UNK
  15. BISACODYL [Concomitant]
     Dosage: 5 MG, UNK
  16. ENBREL [Suspect]
     Indication: RHEUMATOID ARTHRITIS
     Dosage: 50 MG, QWK
     Dates: start: 20100217
  17. LEXAPRO [Concomitant]
     Dosage: 10 MG, UNK
  18. SUPER B COMPLEX WITH VITAMIN C [Concomitant]
     Dosage: UNK
  19. SPIRIVA [Concomitant]
     Dosage: 18 MUG, UNK
  20. PRILOSEC [Concomitant]
     Dosage: 20 MG, UNK

REACTIONS (5)
  - AORTIC ANEURYSM [None]
  - POST PROCEDURAL PULMONARY EMBOLISM [None]
  - ARTHRALGIA [None]
  - POSTOPERATIVE ILEUS [None]
  - ATRIAL FIBRILLATION [None]
